FAERS Safety Report 5357246-8 (Version None)
Quarter: 2007Q2

REPORT INFORMATION
  Report Type: 
  Country: None (occurrence: None)
  Receive Date: 20070614
  Receipt Date: 20070606
  Transmission Date: 20071010
  Serious: Yes (Hospitalization, Other)
  Sender: FDA-Public Use
  Company Number: JP-ELI_LILLY_AND_COMPANY-JP200704000712

PATIENT
  Age: 67 Year
  Sex: Male
  Weight: 68 kg

DRUGS (9)
  1. GASTER [Concomitant]
     Indication: PROPHYLAXIS
     Dosage: 40 MG, DAILY (1/D)
     Route: 048
     Dates: start: 20070223
  2. GASMOTIN [Concomitant]
     Indication: PROPHYLAXIS
     Dosage: 15 MG, DAILY (1/D)
     Route: 048
     Dates: start: 20070228
  3. MAGNESIUM OXIDE [Concomitant]
     Indication: PROPHYLAXIS
     Dosage: 1.2 G, DAILY (1/D)
     Route: 048
     Dates: start: 20070309
  4. PEMETREXED [Suspect]
     Indication: PERITONEAL MESOTHELIOMA MALIGNANT
     Dosage: 850 MG, OTHER
     Route: 042
     Dates: start: 20070315, end: 20070315
  5. PEMETREXED [Suspect]
     Dosage: 500 MG, OTHER
     Route: 042
     Dates: start: 20070409, end: 20070409
  6. CISPLATIN [Suspect]
     Indication: PERITONEAL MESOTHELIOMA MALIGNANT
     Dosage: 75 MG/M2, OTHER
     Route: 042
     Dates: start: 20070315, end: 20070315
  7. CISPLATIN [Suspect]
     Dosage: 50 MG, OTHER
     Route: 042
     Dates: start: 20070409, end: 20070409
  8. PANVITAN [Concomitant]
     Dosage: 0.5 MG, DAILY (1/D)
     Route: 048
     Dates: start: 20070306, end: 20070515
  9. CYANOCOBALAMIN [Concomitant]
     Dosage: 1 MG, OTHER
     Route: 030
     Dates: start: 20070307

REACTIONS (2)
  - ANAEMIA [None]
  - PLATELET COUNT DECREASED [None]
